FAERS Safety Report 5212632-1 (Version None)
Quarter: 2007Q1

REPORT INFORMATION
  Report Type: 
  Country: None (occurrence: None)
  Receive Date: 20070118
  Receipt Date: 20070108
  Transmission Date: 20070707
  Serious: Yes (Other)
  Sender: FDA-Public Use
  Company Number: FR-PFIZER INC-2007002791

PATIENT
  Sex: Female

DRUGS (4)
  1. LYRICA [Suspect]
     Indication: EPILEPSY
  2. DEPAKENE [Concomitant]
  3. TEMESTA [Concomitant]
  4. TRILEPTAL [Concomitant]

REACTIONS (2)
  - BULIMIA NERVOSA [None]
  - WEIGHT INCREASED [None]
